FAERS Safety Report 7272373-6 (Version None)
Quarter: 2011Q1

REPORT INFORMATION
  Report Type: 
  Country: None (occurrence: None)
  Receive Date: 20110127
  Receipt Date: 20101207
  Transmission Date: 20110831
  Serious: Yes (Other)
  Sender: FDA-Public Use
  Company Number: 025841

PATIENT
  Age: 4 Year
  Sex: Male

DRUGS (6)
  1. IMMUNE GLOBULIN NOS [Concomitant]
  2. LAMOTRIGINE (LAMETAC) [Suspect]
     Dates: start: 20100601
  3. KEPPRA [Suspect]
     Indication: EPILEPSY
     Dosage: (2.5 ML - 2.5 ML)
     Dates: start: 20090701
  4. VALPARIN /00228502/ (VALPARIN) [Suspect]
     Dosage: (2.5 ML) ; (3ML-4ML)  ; (5ML - 5 ML)
  5. CLOBAZAM [Concomitant]
  6. PREDNISOLONE [Concomitant]

REACTIONS (6)
  - BENIGN ROLANDIC EPILEPSY [None]
  - AGGRESSION [None]
  - ABNORMAL BEHAVIOUR [None]
  - BALANCE DISORDER [None]
  - CEREBRAL ATROPHY [None]
  - OBSESSIVE THOUGHTS [None]
